FAERS Safety Report 12876707 (Version 1)
Quarter: 2016Q4

REPORT INFORMATION
  Report Type: Spontaneous
  Country: US (occurrence: US)
  Receive Date: 20161021
  Receipt Date: 20161021
  Transmission Date: 20170207
  Serious: Yes (Hospitalization)
  Sender: FDA-Public Use
  Company Number: None

PATIENT
  Age: 41 Year
  Sex: Male
  Weight: 102.97 kg

DRUGS (20)
  1. HUMULIN NOS [Concomitant]
     Active Substance: INSULIN HUMAN
  2. OMEPRAZOLE. [Concomitant]
     Active Substance: OMEPRAZOLE
  3. TACROLIMUS (GENERIC PROGRAF.) [Suspect]
     Active Substance: TACROLIMUS
     Indication: PROPHYLAXIS AGAINST TRANSPLANT REJECTION
     Dosage: 4-6 MG TWICE DAILY ORAL
     Route: 048
     Dates: start: 20160301, end: 20161012
  4. MAG. OXIDE [Concomitant]
  5. MVT [Concomitant]
  6. PROGRAF [Concomitant]
     Active Substance: TACROLIMUS\TACROLIMUS ANHYDROUS
  7. COREG [Concomitant]
     Active Substance: CARVEDILOL
  8. SPIRINOLACTONE [Concomitant]
  9. ASA [Concomitant]
     Active Substance: ASPIRIN
  10. NOVALOG INSULIN [Concomitant]
  11. VALGANCICLOVIR. [Concomitant]
     Active Substance: VALGANCICLOVIR
  12. BUMEX [Concomitant]
     Active Substance: BUMETANIDE
  13. CAPTOPRIL. [Concomitant]
     Active Substance: CAPTOPRIL
  14. OYSTER SHELL CALCIUM [Concomitant]
     Active Substance: CALCIUM
  15. PRAVASTATIN. [Concomitant]
     Active Substance: PRAVASTATIN
  16. PREDNISONE. [Concomitant]
     Active Substance: PREDNISONE
  17. APIXABAN [Concomitant]
     Active Substance: APIXABAN
  18. CLOTRIMAZOLE. [Concomitant]
     Active Substance: CLOTRIMAZOLE
  19. MYCOPHENOLATE [Concomitant]
     Active Substance: MYCOPHENOLIC ACID
  20. BACTRIM DS [Concomitant]
     Active Substance: SULFAMETHOXAZOLE\TRIMETHOPRIM

REACTIONS (4)
  - Drug resistance [None]
  - Product substitution issue [None]
  - Transplant rejection [None]
  - Drug level decreased [None]

NARRATIVE: CASE EVENT DATE: 20160831
